FAERS Safety Report 10068632 (Version 2)
Quarter: 2014Q2

REPORT INFORMATION
  Report Type: Spontaneous
  Country: JP (occurrence: JP)
  Receive Date: 20140409
  Receipt Date: 20140611
  Transmission Date: 20141212
  Serious: Yes (Hospitalization, Other)
  Sender: FDA-Public Use
  Company Number: JP-GLAXOSMITHKLINE-B0842057A

PATIENT
  Age: 63 Year
  Sex: Female
  Weight: 67 kg

DRUGS (7)
  1. NOGITECAN HYDROCHLORIDE [Suspect]
     Indication: OVARIAN CANCER RECURRENT
     Dosage: 1MGM2 PER DAY
     Route: 042
     Dates: start: 20120321, end: 20120325
  2. NOGITECAN HYDROCHLORIDE [Suspect]
     Indication: OVARIAN CANCER RECURRENT
     Dosage: .75MGM2 PER DAY
     Route: 042
     Dates: start: 20120424, end: 20120428
  3. NOGITECAN HYDROCHLORIDE [Suspect]
     Indication: OVARIAN CANCER RECURRENT
     Route: 065
  4. TAPENTADOL [Suspect]
     Indication: PRODUCT USED FOR UNKNOWN INDICATION
     Route: 065
  5. KYTRIL [Concomitant]
     Dosage: 3G PER DAY
     Dates: start: 20120321, end: 20120325
  6. KYTRIL [Concomitant]
     Dosage: 3G PER DAY
     Dates: start: 20120424, end: 20120428
  7. DOMPERIDONE [Concomitant]
     Dosage: 30G PER DAY
     Route: 048
     Dates: start: 20120423, end: 20120428

REACTIONS (6)
  - Nausea [Recovered/Resolved]
  - Decreased appetite [Unknown]
  - White blood cell count decreased [Recovering/Resolving]
  - Neutrophil count decreased [Recovered/Resolved]
  - Anaemia [Not Recovered/Not Resolved]
  - Platelet count decreased [Recovered/Resolved]
